FAERS Safety Report 20768973 (Version 1)
Quarter: 2022Q2

REPORT INFORMATION
  Report Type: Spontaneous
  Country: US (occurrence: US)
  Receive Date: 20220429
  Receipt Date: 20220429
  Transmission Date: 20220721
  Serious: No
  Sender: FDA-Public Use
  Company Number: US-TARO-2021TAR00416

PATIENT

DRUGS (3)
  1. FLUOROURACIL [Suspect]
     Active Substance: FLUOROURACIL
     Indication: Precancerous condition
     Dosage: BID, MORNING AND NIGHT
     Route: 061
     Dates: start: 20210319, end: 20210324
  2. VITAMIN D [Concomitant]
     Active Substance: VITAMIN D NOS
     Indication: Product used for unknown indication
     Dosage: UNK
     Route: 065
  3. SYNTHROID [Concomitant]
     Active Substance: LEVOTHYROXINE SODIUM
     Indication: Product used for unknown indication
     Dosage: UNK
     Route: 065

REACTIONS (5)
  - Swelling face [Recovering/Resolving]
  - Erythema [Recovering/Resolving]
  - Rash macular [Unknown]
  - Pain [Recovering/Resolving]
  - Ocular hyperaemia [Unknown]

NARRATIVE: CASE EVENT DATE: 20210323
